FAERS Safety Report 6401244-X (Version None)
Quarter: 2009Q4

REPORT INFORMATION
  Report Type: 
  Country: None (occurrence: None)
  Receive Date: 20091015
  Receipt Date: 20091007
  Transmission Date: 20100525
  Serious: Yes (Other)
  Sender: FDA-Public Use
  Company Number: RU-BAYER-200933954GPV

PATIENT
  Age: 60 Year
  Sex: Female

DRUGS (1)
  1. ANGELIQ [Suspect]
     Indication: HORMONE REPLACEMENT THERAPY
     Route: 048
     Dates: start: 20050601

REACTIONS (5)
  - CHILLS [None]
  - HOT FLUSH [None]
  - HYPERHIDROSIS [None]
  - SYNCOPE [None]
  - VERTIGO [None]
